FAERS Safety Report 23014325 (Version 4)
Quarter: 2023Q4

REPORT INFORMATION
  Report Type: Report from Study
  Country: DE (occurrence: DE)
  Receive Date: 20231002
  Receipt Date: 20231023
  Transmission Date: 20240110
  Serious: Yes (Life-Threatening, Hospitalization)
  Sender: FDA-Public Use
  Company Number: DE-002147023-NVSC2023DE208701

PATIENT
  Age: 46 Year
  Sex: Male
  Weight: 70 kg

DRUGS (6)
  1. OFATUMUMAB [Suspect]
     Active Substance: OFATUMUMAB
     Indication: Relapsing multiple sclerosis
     Dosage: 20 MG, Q4W
     Route: 058
     Dates: start: 20190705
  2. PLACEBO [Suspect]
     Active Substance: UNSPECIFIED INGREDIENT
     Indication: Relapsing multiple sclerosis
     Dosage: CODE NOT BROKEN
     Route: 058
     Dates: start: 20190712
  3. BEROTEC [Concomitant]
     Active Substance: FENOTEROL HYDROBROMIDE
     Indication: Asthma
     Dosage: UNK
     Route: 065
     Dates: start: 201504, end: 20230618
  4. AZITHROMYCIN [Concomitant]
     Active Substance: AZITHROMYCIN
     Indication: Infection
     Dosage: UNK
     Route: 065
     Dates: start: 20230618, end: 20230620
  5. UNACID [Concomitant]
     Indication: Infection
     Dosage: UNK
     Route: 065
     Dates: start: 20230618, end: 20230621
  6. PANTOPRAZOLE SODIUM [Concomitant]
     Active Substance: PANTOPRAZOLE SODIUM
     Indication: Gastritis prophylaxis
     Dosage: UNK
     Route: 065
     Dates: start: 20230618, end: 20230624

REACTIONS (1)
  - Asthma [Recovered/Resolved]

NARRATIVE: CASE EVENT DATE: 20230618
